FAERS Safety Report 5650304-X (Version None)
Quarter: 2008Q1

REPORT INFORMATION
  Report Type: 
  Country: None (occurrence: None)
  Receive Date: 20080304
  Receipt Date: 20080304
  Transmission Date: 20080703
  Serious: No
  Sender: FDA-Public Use
  Company Number: None

PATIENT
  Age: 48 Year
  Sex: Male
  Weight: 98.4306 kg

DRUGS (1)
  1. CLOZARIL [Suspect]
     Indication: SCHIZOPHRENIA
     Dosage: 800 MG DAILY PO
     Route: 048

REACTIONS (5)
  - HYPOTENSION [None]
  - HYPOVENTILATION [None]
  - MEDICATION ERROR [None]
  - ROAD TRAFFIC ACCIDENT [None]
  - SEDATION [None]
